FAERS Safety Report 16892147 (Version 1)
Quarter: 2019Q4

REPORT INFORMATION
  Report Type: Spontaneous
  Country: CA (occurrence: CA)
  Receive Date: 20191007
  Receipt Date: 20191007
  Transmission Date: 20200122
  Serious: Yes (Death)
  Sender: FDA-Public Use
  Company Number: CA-TEVA-2019-CA-1117061

PATIENT
  Age: 50 Year
  Sex: Female
  Weight: 118 kg

DRUGS (7)
  1. GABAPENTIN. [Suspect]
     Active Substance: GABAPENTIN
     Route: 065
  2. ZOPICLONE [Concomitant]
     Active Substance: ZOPICLONE
  3. CYCLOBENZAPRINE. [Concomitant]
     Active Substance: CYCLOBENZAPRINE
  4. BUPROPION SR [Suspect]
     Active Substance: BUPROPION HYDROCHLORIDE
     Route: 065
  5. NAPROXEN. [Concomitant]
     Active Substance: NAPROXEN
  6. TYLENOL WITH CODEINE#3 [Concomitant]
  7. DIPHENHYDRAMINE. [Suspect]
     Active Substance: DIPHENHYDRAMINE
     Route: 065

REACTIONS (1)
  - Death [Fatal]
